FAERS Safety Report 18052890 (Version 1)
Quarter: 2020Q3

REPORT INFORMATION
  Report Type: Spontaneous
  Country: US (occurrence: US)
  Receive Date: 20200721
  Receipt Date: 20200721
  Transmission Date: 20201103
  Serious: Yes (Hospitalization, Other)
  Sender: FDA-Public Use
  Company Number: US-009507513-2007USA005716

PATIENT
  Age: 12 Year
  Sex: Male

DRUGS (1)
  1. KEYTRUDA [Suspect]
     Active Substance: PEMBROLIZUMAB
     Indication: HODGKIN^S DISEASE STAGE III
     Dosage: UNK, CYCLICAL

REACTIONS (2)
  - Type 1 diabetes mellitus [Not Recovered/Not Resolved]
  - Hypothyroidism [Unknown]
